FAERS Safety Report 4375203-5 (Version None)
Quarter: 2004Q2

REPORT INFORMATION
  Report Type: 
  Country: None (occurrence: None)
  Receive Date: 20040607
  Receipt Date: 20030804
  Transmission Date: 20050107
  Serious: Yes (Other)
  Sender: FDA-Public Use
  Company Number: 344108

PATIENT
  Age: 15 Year
  Sex: Female
  Weight: 61.2 kg

DRUGS (3)
  1. ACCUTANE [Suspect]
     Indication: ACNE CYSTIC
     Dosage: ORAL
     Route: 048
     Dates: start: 19990606, end: 20020915
  2. ALBUTEROL INHALER (ALBUTEROL) [Concomitant]
  3. VANCERIL INHALER (BECLOMETHASONE DIPROPIONATE) [Concomitant]

REACTIONS (6)
  - CRYING [None]
  - DECREASED INTEREST [None]
  - DEPRESSION [None]
  - EATING DISORDER [None]
  - IRRITABILITY [None]
  - PURGING [None]
